FAERS Safety Report 6436441-0 (Version None)
Quarter: 2009Q4

REPORT INFORMATION
  Report Type: 
  Country: None (occurrence: None)
  Receive Date: 20091110
  Receipt Date: 20070914
  Transmission Date: 20100525
  Serious: No
  Sender: FDA-Public Use
  Company Number: AEUSA200700212

PATIENT
  Age: 57 Year
  Sex: Male

DRUGS (2)
  1. GAMUNEX [Suspect]
     Indication: IMMUNODEFICIENCY COMMON VARIABLE
     Dosage: 40 GM;Q3W;IV
     Route: 042
     Dates: start: 20030721
  2. LORTAB [Concomitant]

REACTIONS (2)
  - UVEITIS [None]
  - VISION BLURRED [None]
